FAERS Safety Report 5972958-0 (Version None)
Quarter: 2008Q4

REPORT INFORMATION
  Report Type: 
  Country: None (occurrence: None)
  Receive Date: 20081201
  Receipt Date: 20081121
  Transmission Date: 20090506
  Serious: Yes (Other)
  Sender: FDA-Public Use
  Company Number: PHHY2008NL29267

PATIENT
  Sex: Female

DRUGS (1)
  1. TEGRETOL [Suspect]
     Dosage: 250 ML UNK

REACTIONS (8)
  - BLOOD IRON DECREASED [None]
  - DYSKINESIA [None]
  - GASTROINTESTINAL DISORDER [None]
  - LIMB DISCOMFORT [None]
  - MUSCLE SPASMS [None]
  - POSTURE ABNORMAL [None]
  - SOMNOLENCE [None]
  - VISUAL IMPAIRMENT [None]
